FAERS Safety Report 5373806-2 (Version None)
Quarter: 2007Q2

REPORT INFORMATION
  Report Type: 
  Country: None (occurrence: None)
  Receive Date: 20070628
  Receipt Date: 20070619
  Transmission Date: 20071010
  Serious: Yes (Death, Hospitalization)
  Sender: FDA-Public Use
  Company Number: RO-ABBOTT-07P-135-0371950-00

PATIENT
  Age: 19 Year
  Sex: Male
  Weight: 51 kg

DRUGS (3)
  1. KALETRA [Suspect]
     Indication: HIV INFECTION
     Route: 048
     Dates: start: 20070313, end: 20070429
  2. LAMIVUDINE + ZIDOVUDINE [Concomitant]
     Indication: HIV INFECTION
     Route: 048
     Dates: start: 20070313, end: 20070329
  3. VORICONAZOLE [Concomitant]
     Indication: OROPHARYNGEAL CANDIDIASIS
     Route: 048
     Dates: start: 20070313, end: 20070320

REACTIONS (1)
  - CEREBRAL TOXOPLASMOSIS [None]
